FAERS Safety Report 8345721-3 (Version None)
Quarter: 2012Q2

REPORT INFORMATION
  Report Type: 
  Country: None (occurrence: None)
  Receive Date: 20120508
  Receipt Date: 20120425
  Transmission Date: 20120825
  Serious: Yes (Hospitalization)
  Sender: FDA-Public Use
  Company Number: US-ELI_LILLY_AND_COMPANY-US201203007595

PATIENT
  Sex: Female

DRUGS (6)
  1. FORTEO [Suspect]
     Dosage: 20 UG, QD
     Route: 065
     Dates: start: 20120413, end: 20120421
  2. VITAMIN D [Concomitant]
  3. FORTEO [Suspect]
     Indication: OSTEOPOROSIS
     Dosage: 20 UG, QD
     Route: 065
     Dates: start: 20040101, end: 20060101
  4. CALCIUM [Concomitant]
  5. TRAMADOL HYDROCHLORIDE [Concomitant]
     Indication: PAIN
  6. MEDROL [Concomitant]
     Dosage: 4 MG, UNK

REACTIONS (20)
  - SPINAL FRACTURE [None]
  - PARAESTHESIA [None]
  - INJECTION SITE ERYTHEMA [None]
  - ROAD TRAFFIC ACCIDENT [None]
  - RIB FRACTURE [None]
  - CONTUSION [None]
  - INCORRECT DRUG ADMINISTRATION DURATION [None]
  - MALAISE [None]
  - FLUSHING [None]
  - ARTHRALGIA [None]
  - CERVICAL VERTEBRAL FRACTURE [None]
  - ADVERSE EVENT [None]
  - SPINAL COMPRESSION FRACTURE [None]
  - RHEUMATOID ARTHRITIS [None]
  - DRUG DOSE OMISSION [None]
  - DISLOCATION OF VERTEBRA [None]
  - TRAUMATIC LIVER INJURY [None]
  - FEELING HOT [None]
  - BLOOD POTASSIUM DECREASED [None]
  - HYPOAESTHESIA [None]
